FAERS Safety Report 24468254 (Version 1)
Quarter: 2024Q4

REPORT INFORMATION
  Report Type: Spontaneous
  Country: CN (occurrence: CN)
  Receive Date: 20241018
  Receipt Date: 20241018
  Transmission Date: 20250115
  Serious: Yes (Other)
  Sender: RANBAXY
  Company Number: CN-SUN PHARMACEUTICAL INDUSTRIES LTD-2024R1-474097

PATIENT
  Age: 69 Year
  Sex: Male

DRUGS (2)
  1. DOCETAXEL [Suspect]
     Active Substance: DOCETAXEL
     Indication: Chemotherapy
     Dosage: 100 MILLIGRAM, DAY 1
     Route: 041
  2. LOBAPLATIN [Suspect]
     Active Substance: LOBAPLATIN
     Indication: Chemotherapy
     Dosage: 40 MILLIGRAM, DAY 1
     Route: 041

REACTIONS (1)
  - Therapy partial responder [Unknown]
